FAERS Safety Report 20872073 (Version 1)
Quarter: 2022Q2

REPORT INFORMATION
  Report Type: Spontaneous
  Country: US (occurrence: US)
  Receive Date: 20220525
  Receipt Date: 20220525
  Transmission Date: 20220721
  Serious: No
  Sender: FDA-Public Use
  Company Number: US-BAYER-2022A073619

PATIENT
  Age: 92 Year
  Sex: Male

DRUGS (1)
  1. CLARITIN [Suspect]
     Active Substance: LORATADINE
     Indication: Product used for unknown indication
     Dosage: 16 DF
     Route: 048

REACTIONS (2)
  - Extra dose administered [Unknown]
  - Expired product administered [Unknown]

NARRATIVE: CASE EVENT DATE: 20220520
